FAERS Safety Report 13695238 (Version 1)
Quarter: 2017Q2

REPORT INFORMATION
  Report Type: Spontaneous
  Country: US (occurrence: US)
  Receive Date: 20170627
  Receipt Date: 20170627
  Transmission Date: 20170830
  Serious: Yes (Hospitalization)
  Sender: FDA-Public Use
  Company Number: US-VIFOR (INTERNATIONAL) INC.-VIT-2017-00427

PATIENT
  Age: 78 Year
  Sex: Male
  Weight: 65.83 kg

DRUGS (10)
  1. SODIUM BICARBONATE. [Concomitant]
     Active Substance: SODIUM BICARBONATE
  2. AMLODIPINE BESILATE [Concomitant]
     Active Substance: AMLODIPINE BESYLATE
  3. LACTULOSE. [Concomitant]
     Active Substance: LACTULOSE
  4. VELTASSA [Suspect]
     Active Substance: PATIROMER
     Indication: HYPERKALAEMIA
     Route: 048
     Dates: start: 20161129
  5. COREG [Concomitant]
     Active Substance: CARVEDILOL
  6. FINASTERIDE. [Concomitant]
     Active Substance: FINASTERIDE
  7. IRON [Concomitant]
     Active Substance: IRON
  8. TYLENOL [Concomitant]
     Active Substance: ACETAMINOPHEN
  9. COLACE [Concomitant]
     Active Substance: DOCUSATE SODIUM
  10. RAPAFLO [Concomitant]
     Active Substance: SILODOSIN

REACTIONS (2)
  - Chronic kidney disease [Unknown]
  - Acute kidney injury [Unknown]

NARRATIVE: CASE EVENT DATE: 20161215
